FAERS Safety Report 6647578-5 (Version None)
Quarter: 2010Q1

REPORT INFORMATION
  Report Type: 
  Country: None (occurrence: None)
  Receive Date: 20100323
  Receipt Date: 20100323
  Transmission Date: 20100710
  Serious: Yes (Hospitalization)
  Sender: FDA-Public Use
  Company Number: None

PATIENT
  Age: 63 Year
  Sex: Male
  Weight: 66.82 kg

DRUGS (1)
  1. DIAZEPAM [Suspect]
     Dosage: 420 MG IV
     Route: 042
     Dates: start: 20090603, end: 20090607

REACTIONS (3)
  - CYANOSIS [None]
  - HYPOXIA [None]
  - UNRESPONSIVE TO STIMULI [None]
